FAERS Safety Report 7929519-3 (Version None)
Quarter: 2011Q4

REPORT INFORMATION
  Report Type: 
  Country: None (occurrence: None)
  Receive Date: 20111121
  Receipt Date: 20111110
  Transmission Date: 20120403
  Serious: Yes (Death, Life-Threatening, Other)
  Sender: FDA-Public Use
  Company Number: US-ELI_LILLY_AND_COMPANY-US201111003384

PATIENT
  Sex: Female
  Weight: 63 kg

DRUGS (9)
  1. TRAZODONE HCL [Interacting]
     Indication: DEMENTIA
     Dosage: 75 MG, QD
     Dates: end: 20111027
  2. COUMADIN [Concomitant]
     Indication: ATRIAL FIBRILLATION
  3. REQUIP [Concomitant]
     Indication: PARKINSON'S DISEASE
     Dosage: 2 DF, UNK
  4. SINEMET [Concomitant]
     Indication: PARKINSON'S DISEASE
     Dosage: UNK
  5. CYMBALTA [Suspect]
     Indication: DEPRESSION
     Dosage: 60 MG, QOD
  6. RISPERDAL [Concomitant]
     Indication: DEMENTIA
     Dosage: 0.125 MG, UNKNOWN
  7. AZILECT [Interacting]
     Indication: PARKINSON'S DISEASE
     Dosage: 1 MG, QD
     Dates: end: 20111020
  8. MULTI-VITAMINS [Concomitant]
  9. TYLENOL                                 /SCH/ [Concomitant]
     Indication: PAIN

REACTIONS (9)
  - DEATH [None]
  - BLOOD POTASSIUM DECREASED [None]
  - HYPERNATRAEMIA [None]
  - DRUG INTERACTION [None]
  - UNRESPONSIVE TO STIMULI [None]
  - SEROTONIN SYNDROME [None]
  - WEIGHT BEARING DIFFICULTY [None]
  - OFF LABEL USE [None]
  - BLOOD CHLORIDE INCREASED [None]
